FAERS Safety Report 11889436 (Version 6)
Quarter: 2017Q4

REPORT INFORMATION
  Report Type: Spontaneous
  Country: JP (occurrence: JP)
  Receive Date: 20160105
  Receipt Date: 20171019
  Transmission Date: 20180320
  Serious: Yes (Hospitalization, Other)
  Sender: FDA-Public Use
  Company Number: JP-BAXALTA-2015BLT003466

PATIENT
  Age: 42 Year
  Sex: Male
  Weight: 80 kg

DRUGS (6)
  1. FEIBA NF [Suspect]
     Active Substance: ANTI-INHIBITOR COAGULANT COMPLEX
     Indication: HAEMOSTASIS
     Dosage: 5000 IU, 3X A WEEK, PROPHYLAXIS
     Route: 042
     Dates: start: 20160405, end: 20170228
  2. FEIBA NF [Suspect]
     Active Substance: ANTI-INHIBITOR COAGULANT COMPLEX
     Indication: PROPHYLAXIS
     Dosage: 5000 IU, 3X A WEEK
     Route: 042
     Dates: start: 20170309
  3. ADVATE [Suspect]
     Active Substance: ANTIHEMOPHILIC FACTOR, HUMAN RECOMBINANT
     Indication: IMMUNE TOLERANCE INDUCTION
     Dosage: 4000 IU, 3X A WEEK
     Route: 042
     Dates: start: 20150818, end: 20150910
  4. ADVATE [Suspect]
     Active Substance: ANTIHEMOPHILIC FACTOR, HUMAN RECOMBINANT
     Dosage: 4000 IU, 3X A WEEK, ITI
     Route: 042
  5. ADVATE [Suspect]
     Active Substance: ANTIHEMOPHILIC FACTOR, HUMAN RECOMBINANT
     Indication: FACTOR VIII INHIBITION
     Dosage: 4000 IU, 3X A WEEK, ITI
     Route: 042
     Dates: start: 20160405, end: 20170228
  6. ADVATE [Suspect]
     Active Substance: ANTIHEMOPHILIC FACTOR, HUMAN RECOMBINANT
     Indication: FACTOR VIII DEFICIENCY
     Dosage: 2000 IU, 3X A WEEK
     Route: 042
     Dates: end: 20150817

REACTIONS (9)
  - Ligament sprain [Recovered/Resolved]
  - Epistaxis [Recovered/Resolved]
  - Joint swelling [Recovered/Resolved]
  - Joint swelling [Recovered/Resolved]
  - Facial bones fracture [Recovered/Resolved]
  - Haemorrhage [Recovering/Resolving]
  - Factor VIII inhibition [Recovering/Resolving]
  - Haemarthrosis [Recovered/Resolved]
  - Intra-abdominal haemorrhage [Recovering/Resolving]

NARRATIVE: CASE EVENT DATE: 20150730
